FAERS Safety Report 22241448 (Version 5)
Quarter: 2023Q2

REPORT INFORMATION
  Report Type: Report from Study
  Country: US (occurrence: US)
  Receive Date: 20230421
  Receipt Date: 20230626
  Transmission Date: 20230721
  Serious: Yes (Other)
  Sender: FDA-Public Use
  Company Number: US-002147023-NVSC2023US089807

PATIENT
  Sex: Female
  Weight: 63.5 kg

DRUGS (4)
  1. COSENTYX [Suspect]
     Active Substance: SECUKINUMAB
     Indication: Psoriasis
     Dosage: 300 MG, QMO (4 WEEKS)
     Route: 058
     Dates: start: 2017
  2. METHOTREXATE [Suspect]
     Active Substance: METHOTREXATE
     Indication: Psoriasis
     Dosage: UNK
     Route: 048
  3. CEPHALEXIN [Concomitant]
     Active Substance: CEPHALEXIN
     Indication: Psoriasis
     Dosage: UNK
     Route: 065
  4. VITAMIN D NOS [Concomitant]
     Active Substance: VITAMIN D NOS
     Indication: Supplementation therapy
     Dosage: UNK, QD
     Route: 048

REACTIONS (10)
  - Malignant melanoma [Recovered/Resolved]
  - Psoriasis [Not Recovered/Not Resolved]
  - Papule [Recovered/Resolved]
  - Macule [Recovered/Resolved]
  - Melanocytic naevus [Recovered/Resolved]
  - Solar lentigo [Recovered/Resolved]
  - Onychomycosis [Recovered/Resolved]
  - Skin papilloma [Recovered/Resolved]
  - Tinea pedis [Recovered/Resolved]
  - Treatment failure [Unknown]

NARRATIVE: CASE EVENT DATE: 20170101
